FAERS Safety Report 5264675-X (Version None)
Quarter: 2007Q1

REPORT INFORMATION
  Report Type: 
  Country: None (occurrence: None)
  Receive Date: 20070314
  Receipt Date: 20070306
  Transmission Date: 20070707
  Serious: Yes (Other)
  Sender: FDA-Public Use
  Company Number: 2007UW04218

PATIENT
  Sex: Male

DRUGS (2)
  1. PRILOSEC [Suspect]
     Indication: HIATUS HERNIA
     Route: 048
  2. PRILOSEC [Suspect]
     Indication: EROSIVE OESOPHAGITIS
     Route: 048

REACTIONS (3)
  - DRUG INEFFECTIVE [None]
  - OESOPHAGEAL DILATION PROCEDURE [None]
  - OESOPHAGEAL DISORDER [None]
